FAERS Safety Report 9672470 (Version 1)
Quarter: 2013Q4

REPORT INFORMATION
  Report Type: Spontaneous
  Country: US (occurrence: US)
  Receive Date: 20131106
  Receipt Date: 20131106
  Transmission Date: 20140711
  Serious: Yes (Other)
  Sender: FDA-Public Use
  Company Number: CHPA2013US016460

PATIENT
  Age: 66 Year
  Sex: Female

DRUGS (3)
  1. EXCEDRIN MIGRAINE [Suspect]
     Indication: MIGRAINE
     Dosage: UNK, UNK
     Route: 048
  2. VOLTAREN ^NOVARTIS^ [Concomitant]
     Indication: ARTHRITIS
  3. ASPERCREME [Concomitant]
     Indication: ARTHRITIS

REACTIONS (10)
  - Multiple sclerosis [Not Recovered/Not Resolved]
  - Sensory loss [Recovered/Resolved]
  - Bursitis [Unknown]
  - Speech disorder [Recovered/Resolved]
  - Hormone level abnormal [Recovered/Resolved]
  - Dizziness [Recovered/Resolved]
  - Migraine [Recovering/Resolving]
  - Influenza like illness [Recovered/Resolved]
  - Vision blurred [Recovered/Resolved]
  - Hypoaesthesia [Recovered/Resolved]
